FAERS Safety Report 7075069-9 (Version None)
Quarter: 2010Q4

REPORT INFORMATION
  Report Type: 
  Country: None (occurrence: None)
  Receive Date: 20101029
  Receipt Date: 20100422
  Transmission Date: 20110411
  Serious: No
  Sender: FDA-Public Use
  Company Number: US-WYE-H14627810

PATIENT
  Age: 38 Year
  Sex: Male
  Weight: 95.34 kg

DRUGS (2)
  1. ALAVERT [Suspect]
     Indication: SNEEZING
     Route: 048
     Dates: start: 20100401
  2. ALAVERT [Suspect]
     Indication: NASAL DISCOMFORT

REACTIONS (1)
  - DRUG INEFFECTIVE [None]
